FAERS Safety Report 24612333 (Version 2)
Quarter: 2024Q4

REPORT INFORMATION
  Report Type: Spontaneous
  Country: US (occurrence: US)
  Receive Date: 20241113
  Receipt Date: 20241128
  Transmission Date: 20250114
  Serious: Yes (Other)
  Sender: TEVA
  Company Number: US-TEVA-VS-3262592

PATIENT
  Age: 13 Month
  Sex: Male

DRUGS (3)
  1. TOPOTECAN [Suspect]
     Active Substance: TOPOTECAN HYDROCHLORIDE
     Indication: Neuroblastoma
     Route: 065
  2. CYCLOPHOSPHAMIDE [Suspect]
     Active Substance: CYCLOPHOSPHAMIDE
     Indication: Neuroblastoma
     Route: 065
  3. ISRADIPINE [Suspect]
     Active Substance: ISRADIPINE
     Indication: Hypertension
     Route: 065

REACTIONS (4)
  - Atypical haemolytic uraemic syndrome [Recovered/Resolved]
  - Therapy non-responder [Unknown]
  - Oliguria [Unknown]
  - Hypertension [Unknown]
